FAERS Safety Report 7938226-2 (Version None)
Quarter: 2011Q4

REPORT INFORMATION
  Report Type: 
  Country: None (occurrence: None)
  Receive Date: 20111123
  Receipt Date: 20111118
  Transmission Date: 20120403
  Serious: Yes (Other)
  Sender: FDA-Public Use
  Company Number: FR-ABBOTT-11P-056-0874144-00

PATIENT
  Sex: Male

DRUGS (1)
  1. DEPAKENE [Suspect]
     Indication: PRODUCT USED FOR UNKNOWN INDICATION
     Route: 048
     Dates: start: 19740101, end: 20070101

REACTIONS (2)
  - AFFECTIVE DISORDER [None]
  - SUICIDAL BEHAVIOUR [None]
